FAERS Safety Report 16753709 (Version 2)
Quarter: 2020Q2

REPORT INFORMATION
  Report Type: Spontaneous
  Country: ES (occurrence: ES)
  Receive Date: 20190829
  Receipt Date: 20200526
  Transmission Date: 20200713
  Serious: Yes (Other)
  Sender: FDA-Public Use
  Company Number: ES-SUN PHARMACEUTICAL INDUSTRIES LTD-2019R1-218275

PATIENT
  Age: 74 Year
  Sex: Female

DRUGS (1)
  1. HYDROCHLOROTHIAZIDE. [Suspect]
     Active Substance: HYDROCHLOROTHIAZIDE
     Indication: DRUG PROVOCATION TEST
     Dosage: UNK
     Route: 065

REACTIONS (2)
  - Leukopenia [Recovered/Resolved]
  - Acute pulmonary oedema [Unknown]
